FAERS Safety Report 4390347-X (Version None)
Quarter: 2004Q2

REPORT INFORMATION
  Report Type: 
  Country: None (occurrence: None)
  Receive Date: 20040630
  Receipt Date: 20040618
  Transmission Date: 20050107
  Serious: Yes (Other)
  Sender: FDA-Public Use
  Company Number: 206194

PATIENT
  Age: 55 Year
  Sex: Female
  Weight: 130.9 kg

DRUGS (12)
  1. BEVACIZUMAB(BEVACIZUMAB) PWDR + SOLVENT, INFUSION SOLN, 100MG [Suspect]
     Indication: COLORECTAL CANCER METASTATIC
     Dosage: 5 MG/KG, Q2W, INTRAVENOUS
     Route: 042
     Dates: start: 20040227, end: 20040409
  2. OXALIPLATIN (OXALIPLATIN) [Concomitant]
  3. FLUOROURACIL [Concomitant]
  4. LEUCOVORIN CALCIUM [Concomitant]
  5. DARBEPOETIN ALFA (DARBEPOETIN ALFA) [Concomitant]
  6. PANTOPRAZOLE (PANTOPRAZOLE) [Concomitant]
  7. PREDNISOLONE [Concomitant]
  8. ZOLPIDEM TARTRATE [Concomitant]
  9. POTASSIUM (POTASSIUM NOS) [Concomitant]
  10. AZITHROMYCIN [Concomitant]
  11. VITAMIN B6 [Concomitant]
  12. PROCHLORPERAZINE [Concomitant]

REACTIONS (11)
  - BLOOD CALCIUM DECREASED [None]
  - CHEST DISCOMFORT [None]
  - HAEMOGLOBIN DECREASED [None]
  - HYPERHIDROSIS [None]
  - METASTASES TO LUNG [None]
  - PNEUMONIA [None]
  - PROTHROMBIN TIME PROLONGED [None]
  - PULMONARY EMBOLISM [None]
  - SYNCOPE [None]
  - THROMBOSIS [None]
  - VENOUS OCCLUSION [None]
